FAERS Safety Report 6843897-8 (Version None)
Quarter: 2010Q3

REPORT INFORMATION
  Report Type: 
  Country: None (occurrence: None)
  Receive Date: 20100715
  Receipt Date: 20100712
  Transmission Date: 20110219
  Serious: Yes (Hospitalization)
  Sender: FDA-Public Use
  Company Number: US-B.I. PHARMACEUTICALS,INC./RIDGEFIELD-2010-BP-05161BP

PATIENT
  Sex: Female
  Weight: 68.04 kg

DRUGS (8)
  1. AGGRENOX [Suspect]
     Indication: CEREBROVASCULAR ACCIDENT PROPHYLAXIS
     Route: 048
     Dates: start: 20070101
  2. HYDROCHLOROTHIAZIDE [Concomitant]
     Dosage: 12.5 MG
     Dates: start: 20070101
  3. METOPROLOL [Concomitant]
     Dosage: 50 MG
     Dates: start: 20070101
  4. ARICEPT [Concomitant]
     Dosage: 100 MG
     Dates: start: 20070101
  5. LISINOPRIL [Concomitant]
     Dosage: 40 MG
     Dates: start: 20070101
  6. NORVASC [Concomitant]
     Dosage: 10 MG
     Dates: start: 20070101
  7. LIPITOR [Concomitant]
     Dosage: 40 MG
     Dates: start: 20070101
  8. LANTUS [Concomitant]
     Dosage: 80 U
     Dates: start: 20070101

REACTIONS (3)
  - CEREBROVASCULAR ACCIDENT [None]
  - HYPOAESTHESIA FACIAL [None]
  - TRANSIENT ISCHAEMIC ATTACK [None]
